FAERS Safety Report 7049118-8 (Version None)
Quarter: 2010Q4

REPORT INFORMATION
  Report Type: 
  Country: None (occurrence: None)
  Receive Date: 20101018
  Receipt Date: 20101006
  Transmission Date: 20110411
  Serious: Yes (Hospitalization, Other)
  Sender: FDA-Public Use
  Company Number: AU-NOVOPROD-312400

PATIENT
  Age: 60 Year
  Sex: Male

DRUGS (1)
  1. NOVOMIX 30 [Suspect]
     Indication: TYPE 1 DIABETES MELLITUS
     Dosage: 2 IU, UNK
     Route: 058
     Dates: end: 20100728

REACTIONS (2)
  - FALL [None]
  - HYPOGLYCAEMIA [None]
